FAERS Safety Report 12427552 (Version 1)
Quarter: 2016Q2

REPORT INFORMATION
  Report Type: Spontaneous
  Country: US (occurrence: US)
  Receive Date: 20160602
  Receipt Date: 20160602
  Transmission Date: 20160815
  Serious: No
  Sender: FDA-Public Use
  Company Number: US-SUN PHARMACEUTICAL INDUSTRIES LTD-2015US-108605

PATIENT
  Sex: Female

DRUGS (1)
  1. BUPROPION. [Suspect]
     Active Substance: BUPROPION
     Indication: DEPRESSION
     Dosage: 2 DF, DAILY
     Route: 065
     Dates: start: 201502

REACTIONS (4)
  - Palpitations [Not Recovered/Not Resolved]
  - Abdominal discomfort [Unknown]
  - Constipation [Unknown]
  - Product physical issue [Unknown]

NARRATIVE: CASE EVENT DATE: 2015
